FAERS Safety Report 19029924 (Version 2)
Quarter: 2021Q1

REPORT INFORMATION
  Report Type: Other
  Country: GB (occurrence: GB)
  Receive Date: 20210319
  Receipt Date: 20210323
  Transmission Date: 20210420
  Serious: Yes (Other)
  Sender: FDA-Public Use
  Company Number: GB-CELLTRION INC.-2021GB003412

PATIENT

DRUGS (80)
  1. SULFASALAZINE. [Suspect]
     Active Substance: SULFASALAZINE
     Indication: PRODUCT USED FOR UNKNOWN INDICATION
     Dosage: UNK
     Route: 065
     Dates: start: 201611, end: 201701
  2. SULFASALAZINE. [Suspect]
     Active Substance: SULFASALAZINE
     Dosage: 2 G, 1/ DAY
     Route: 065
     Dates: start: 201811, end: 201812
  3. SULFASALAZINE. [Suspect]
     Active Substance: SULFASALAZINE
     Dosage: 4 G, 1/ DAY
     Route: 065
     Dates: start: 201812, end: 201901
  4. LEFLUNOMIDE. [Suspect]
     Active Substance: LEFLUNOMIDE
     Dosage: 10 MG
     Route: 065
     Dates: start: 201403
  5. LEFLUNOMIDE. [Suspect]
     Active Substance: LEFLUNOMIDE
     Dosage: 20 MG
     Route: 065
     Dates: start: 2015, end: 201803
  6. METHOTREXATE. [Suspect]
     Active Substance: METHOTREXATE
     Dosage: 10 MG TO 15 MG
     Route: 048
     Dates: start: 201804, end: 201807
  7. METHOTREXATE. [Suspect]
     Active Substance: METHOTREXATE
     Dosage: 30 MG
     Route: 058
     Dates: start: 201905, end: 201911
  8. METHOTREXATE. [Suspect]
     Active Substance: METHOTREXATE
     Dosage: 20 MG
     Route: 048
     Dates: start: 201807, end: 2018
  9. METHOTREXATE. [Suspect]
     Active Substance: METHOTREXATE
     Dosage: 20 MG
     Route: 048
     Dates: start: 201807, end: 2018
  10. HYDROXYCHLOROQUINE [Suspect]
     Active Substance: HYDROXYCHLOROQUINE
     Indication: PRODUCT USED FOR UNKNOWN INDICATION
     Dosage: 400 MG
     Route: 065
  11. HUMIRA [Suspect]
     Active Substance: ADALIMUMAB
     Dosage: UNK
     Route: 058
     Dates: start: 201702, end: 2017
  12. RITUXIMAB (UNKNOWN) [Suspect]
     Active Substance: RITUXIMAB
     Indication: PRODUCT USED FOR UNKNOWN INDICATION
  13. SULFASALAZINE. [Suspect]
     Active Substance: SULFASALAZINE
     Dosage: UNK
     Route: 065
     Dates: start: 201611, end: 201701
  14. SULFASALAZINE. [Suspect]
     Active Substance: SULFASALAZINE
     Dosage: UNK
     Route: 065
     Dates: start: 201611, end: 201701
  15. SULFASALAZINE. [Suspect]
     Active Substance: SULFASALAZINE
     Dosage: 2 G, 1/ DAY
     Route: 065
     Dates: end: 201107
  16. SULFASALAZINE. [Suspect]
     Active Substance: SULFASALAZINE
     Dosage: 2 G, 1/ DAY
     Route: 065
     Dates: start: 201811, end: 201812
  17. SULFASALAZINE. [Suspect]
     Active Substance: SULFASALAZINE
     Dosage: 2 G, 1/ DAY
     Route: 065
     Dates: start: 201811, end: 201812
  18. SULFASALAZINE. [Suspect]
     Active Substance: SULFASALAZINE
     Dosage: 3 G, 1/ DAY
     Route: 065
     Dates: start: 201901, end: 201902
  19. METHOTREXATE. [Suspect]
     Active Substance: METHOTREXATE
     Indication: PRODUCT USED FOR UNKNOWN INDICATION
     Dosage: 15 MG
     Route: 048
     Dates: start: 201810
  20. METHOTREXATE. [Suspect]
     Active Substance: METHOTREXATE
     Dosage: 15 MG
     Route: 048
     Dates: start: 201810
  21. METHOTREXATE. [Suspect]
     Active Substance: METHOTREXATE
     Dosage: 10 MG TO 15 MG
     Route: 048
     Dates: start: 201804, end: 201807
  22. METHOTREXATE. [Suspect]
     Active Substance: METHOTREXATE
     Dosage: 25 MG
     Route: 048
     Dates: start: 201901, end: 201905
  23. PREDNISOLON [Concomitant]
     Active Substance: PREDNISOLONE
     Dosage: 8 MG, 1/DAY
     Dates: start: 202003, end: 202005
  24. SULFASALAZINE. [Suspect]
     Active Substance: SULFASALAZINE
     Dosage: 2 G, 1/ DAY
     Route: 065
     Dates: end: 201107
  25. SULFASALAZINE. [Suspect]
     Active Substance: SULFASALAZINE
     Dosage: 3 G, 1/ DAY
     Route: 065
     Dates: start: 201901, end: 201902
  26. METHOTREXATE. [Suspect]
     Active Substance: METHOTREXATE
     Dosage: 15 MG
     Route: 048
     Dates: start: 201810
  27. METHOTREXATE. [Suspect]
     Active Substance: METHOTREXATE
     Dosage: 15 MG
     Route: 048
     Dates: start: 201810
  28. METHOTREXATE. [Suspect]
     Active Substance: METHOTREXATE
     Dosage: 10 MG TO 15 MG
     Route: 048
     Dates: start: 201804, end: 201807
  29. METHOTREXATE. [Suspect]
     Active Substance: METHOTREXATE
     Dosage: 25 MG
     Route: 048
     Dates: start: 201901, end: 201905
  30. METHOTREXATE. [Suspect]
     Active Substance: METHOTREXATE
     Dosage: 30 MG
     Route: 058
     Dates: start: 201905, end: 201911
  31. METHOTREXATE. [Suspect]
     Active Substance: METHOTREXATE
     Dosage: 20 MG
     Route: 048
     Dates: start: 201807, end: 2018
  32. METHOTREXATE. [Suspect]
     Active Substance: METHOTREXATE
     Dosage: 20 MG
     Route: 048
     Dates: start: 201807, end: 2018
  33. HYDROXYCHLOROQUINE [Suspect]
     Active Substance: HYDROXYCHLOROQUINE
     Dosage: 400 MG
     Route: 065
  34. SULFASALAZINE. [Suspect]
     Active Substance: SULFASALAZINE
     Dosage: 2 G, 1/ DAY
     Route: 065
     Dates: end: 201107
  35. SULFASALAZINE. [Suspect]
     Active Substance: SULFASALAZINE
     Dosage: 2 G, 1/ DAY
     Route: 065
     Dates: start: 201811, end: 201812
  36. SULFASALAZINE. [Suspect]
     Active Substance: SULFASALAZINE
     Dosage: 4 G, 1/ DAY
     Route: 065
     Dates: start: 201812, end: 201901
  37. METHOTREXATE. [Suspect]
     Active Substance: METHOTREXATE
     Dosage: 30 MG
     Route: 058
     Dates: start: 201905, end: 201911
  38. HUMIRA [Suspect]
     Active Substance: ADALIMUMAB
     Indication: PRODUCT USED FOR UNKNOWN INDICATION
     Dosage: UNK
     Route: 058
     Dates: start: 200911
  39. HUMIRA [Suspect]
     Active Substance: ADALIMUMAB
     Dosage: UNK
     Route: 058
     Dates: start: 200911
  40. HUMIRA [Suspect]
     Active Substance: ADALIMUMAB
     Dosage: UNK, EVERY 4 WEEKS
     Route: 058
     Dates: start: 201401, end: 201403
  41. PREDNISOLON [Concomitant]
     Active Substance: PREDNISOLONE
     Dosage: 10 MG
     Dates: start: 201905, end: 2019
  42. NAPROXEN. [Concomitant]
     Active Substance: NAPROXEN
     Indication: PRODUCT USED FOR UNKNOWN INDICATION
     Dosage: 1000 MG, 1/ DAY
  43. FUCIDIN [FUSIDATE SODIUM] [Concomitant]
     Active Substance: FUSIDATE SODIUM
     Indication: PSORIASIS
  44. SULFASALAZINE. [Suspect]
     Active Substance: SULFASALAZINE
     Dosage: 2 G, 1/ DAY
     Route: 065
     Dates: end: 201107
  45. SULFASALAZINE. [Suspect]
     Active Substance: SULFASALAZINE
     Dosage: 4 G, 1/ DAY
     Route: 065
     Dates: start: 201812, end: 201901
  46. LEFLUNOMIDE. [Suspect]
     Active Substance: LEFLUNOMIDE
     Dosage: 20 MG
     Route: 065
     Dates: start: 2010
  47. LEFLUNOMIDE. [Suspect]
     Active Substance: LEFLUNOMIDE
     Dosage: 10 MG
     Route: 065
     Dates: start: 201403
  48. LEFLUNOMIDE. [Suspect]
     Active Substance: LEFLUNOMIDE
     Dosage: 20 MG
     Route: 065
     Dates: start: 2015, end: 201803
  49. METHOTREXATE. [Suspect]
     Active Substance: METHOTREXATE
     Dosage: 10 MG TO 15 MG
     Route: 048
     Dates: start: 201804, end: 201807
  50. HUMIRA [Suspect]
     Active Substance: ADALIMUMAB
     Dosage: UNK
     Route: 058
     Dates: start: 201702, end: 2017
  51. HUMIRA [Suspect]
     Active Substance: ADALIMUMAB
     Dosage: UNK, EVERY 3 WEEKS
     Route: 058
     Dates: start: 2013
  52. HUMIRA [Suspect]
     Active Substance: ADALIMUMAB
     Dosage: UNK, EVERY 3 WEEKS
     Route: 058
     Dates: start: 2013
  53. HUMIRA [Suspect]
     Active Substance: ADALIMUMAB
     Dosage: UNK, EVERY 4 WEEKS
     Route: 058
     Dates: start: 201401, end: 201403
  54. SULFASALAZINE. [Suspect]
     Active Substance: SULFASALAZINE
     Dosage: UNK
     Route: 065
     Dates: start: 201611, end: 201701
  55. SULFASALAZINE. [Suspect]
     Active Substance: SULFASALAZINE
     Dosage: 4 G, 1/ DAY
     Route: 065
     Dates: start: 201812, end: 201901
  56. LEFLUNOMIDE. [Suspect]
     Active Substance: LEFLUNOMIDE
     Dosage: 20 MG
     Route: 065
     Dates: start: 2010
  57. METHOTREXATE. [Suspect]
     Active Substance: METHOTREXATE
     Dosage: 30 MG
     Route: 058
     Dates: start: 201905, end: 201911
  58. HUMIRA [Suspect]
     Active Substance: ADALIMUMAB
     Dosage: 1 UNK, EVERY 3 WEEKS
     Route: 058
     Dates: start: 2013
  59. ABATACEPT [Concomitant]
     Active Substance: ABATACEPT
     Indication: PRODUCT USED FOR UNKNOWN INDICATION
     Dosage: 125 MG
     Route: 058
     Dates: start: 201807, end: 201901
  60. SULFASALAZINE. [Suspect]
     Active Substance: SULFASALAZINE
     Dosage: 3 G, 1/ DAY
     Route: 065
     Dates: start: 201901, end: 201902
  61. LEFLUNOMIDE. [Suspect]
     Active Substance: LEFLUNOMIDE
     Indication: PRODUCT USED FOR UNKNOWN INDICATION
     Dosage: 20 MG
     Route: 065
     Dates: start: 2010
  62. LEFLUNOMIDE. [Suspect]
     Active Substance: LEFLUNOMIDE
     Dosage: 20 MG
     Route: 065
     Dates: start: 2015, end: 201803
  63. METHOTREXATE. [Suspect]
     Active Substance: METHOTREXATE
     Dosage: 30 MG
     Route: 058
     Dates: start: 201905, end: 201911
  64. METHOTREXATE. [Suspect]
     Active Substance: METHOTREXATE
     Dosage: 20 MG
     Route: 048
     Dates: start: 201807, end: 2018
  65. HYDROXYCHLOROQUINE [Suspect]
     Active Substance: HYDROXYCHLOROQUINE
     Dosage: 400 MG
     Route: 065
     Dates: start: 201712, end: 201802
  66. HYDROXYCHLOROQUINE [Suspect]
     Active Substance: HYDROXYCHLOROQUINE
     Dosage: 400 MG
     Route: 065
     Dates: start: 201712, end: 201802
  67. HUMIRA [Suspect]
     Active Substance: ADALIMUMAB
     Dosage: UNK
     Route: 058
     Dates: start: 201702, end: 2017
  68. PREDNISOLON [Concomitant]
     Active Substance: PREDNISOLONE
     Dosage: 5 MG
     Dates: start: 202005
  69. PREDNISOLON [Concomitant]
     Active Substance: PREDNISOLONE
     Dosage: 8 MG
     Dates: start: 201907, end: 201908
  70. SULFASALAZINE. [Suspect]
     Active Substance: SULFASALAZINE
     Dosage: 3 G, 1/ DAY
     Route: 065
     Dates: start: 201901, end: 201902
  71. COSENTYX [Suspect]
     Active Substance: SECUKINUMAB
     Indication: PRODUCT USED FOR UNKNOWN INDICATION
     Dosage: 300 MG
     Route: 065
     Dates: start: 201707, end: 2018
  72. LEFLUNOMIDE. [Suspect]
     Active Substance: LEFLUNOMIDE
     Dosage: 10 MG
     Route: 065
     Dates: start: 201403
  73. METHOTREXATE. [Suspect]
     Active Substance: METHOTREXATE
     Dosage: 15 MG
     Route: 048
     Dates: start: 201810
  74. METHOTREXATE. [Suspect]
     Active Substance: METHOTREXATE
     Dosage: 25 MG
     Route: 048
     Dates: start: 201901, end: 201905
  75. METHOTREXATE. [Suspect]
     Active Substance: METHOTREXATE
     Dosage: 25 MG
     Route: 048
     Dates: start: 201901, end: 201905
  76. HUMIRA [Suspect]
     Active Substance: ADALIMUMAB
     Dosage: UNK
     Route: 058
     Dates: start: 200911
  77. HUMIRA [Suspect]
     Active Substance: ADALIMUMAB
     Dosage: UNK, EVERY 4 WEEKS
     Route: 058
     Dates: start: 201401, end: 201403
  78. PREDNISOLON [Concomitant]
     Active Substance: PREDNISOLONE
     Indication: PRODUCT USED FOR UNKNOWN INDICATION
     Dosage: 1 MG, 1/ MONTH
     Dates: start: 201908
  79. PREDNISOLON [Concomitant]
     Active Substance: PREDNISOLONE
     Dosage: 5 MG, 1/DAY
     Dates: start: 201911, end: 2020
  80. TOCILIZUMAB. [Concomitant]
     Active Substance: TOCILIZUMAB
     Indication: PRODUCT USED FOR UNKNOWN INDICATION
     Dosage: 162 MG, 1/WEEK
     Route: 058
     Dates: start: 201804, end: 201807

REACTIONS (22)
  - Chest pain [Unknown]
  - Meniscus injury [Unknown]
  - Joint injury [Unknown]
  - Cough [Recovered/Resolved]
  - Joint swelling [Unknown]
  - Therapeutic product effect decreased [Unknown]
  - Myocardial infarction [Unknown]
  - Mycobacterium tuberculosis complex test positive [Unknown]
  - Emphysema [Unknown]
  - Therapeutic product effect delayed [Unknown]
  - Rash [Unknown]
  - Paraesthesia [Unknown]
  - Dry skin [Unknown]
  - Nausea [Unknown]
  - Rheumatoid nodule [Recovering/Resolving]
  - Cough [Unknown]
  - Condition aggravated [Unknown]
  - Drug ineffective [Unknown]
  - Neuropathy peripheral [Recovering/Resolving]
  - Nodule [Unknown]
  - Hypoaesthesia [Unknown]
  - Treatment noncompliance [Unknown]

NARRATIVE: CASE EVENT DATE: 2010
